FAERS Safety Report 15410547 (Version 28)
Quarter: 2021Q1

REPORT INFORMATION
  Report Type: Spontaneous
  Country: CA (occurrence: CA)
  Receive Date: 20180921
  Receipt Date: 20210302
  Transmission Date: 20210419
  Serious: Yes (Other)
  Sender: FDA-Public Use
  Company Number: CA-CELLTRION INC.-2018CA020292

PATIENT

DRUGS (57)
  1. INFLECTRA [Suspect]
     Active Substance: INFLIXIMAB-DYYB
     Indication: PSORIATIC ARTHROPATHY
     Dosage: 5 MG/KG, Q 0,2,6 WEEKS, THEN EVERY 8 WEEKS
     Route: 042
     Dates: start: 20180504, end: 20181005
  2. INFLECTRA [Suspect]
     Active Substance: INFLIXIMAB-DYYB
     Indication: ANKYLOSING SPONDYLITIS
     Dosage: 5 MG/KG, Q 0,2,6 WEEKS, THEN EVERY 8 WEEKS
     Route: 042
     Dates: start: 20180518, end: 20180518
  3. APO METHOTREXATE [Concomitant]
     Active Substance: METHOTREXATE
     Dosage: 5 MG TABLET, WEEKLY (FILLED ON 16NOV2015)
     Route: 048
  4. CELECOXIB TEVA [Concomitant]
     Active Substance: CELECOXIB
     Dosage: 200 MG, 2X/DAY
     Route: 065
  5. HYDROMORPHONE [Concomitant]
     Active Substance: HYDROMORPHONE
     Indication: PAIN
     Dosage: UNK, AS NEEDED
     Route: 065
  6. METHOTREXATE. [Concomitant]
     Active Substance: METHOTREXATE
     Dosage: 25 MG ON FRIDAY (FILLED ON 29SEP2015)
     Route: 048
  7. SYMBICORT [Concomitant]
     Active Substance: BUDESONIDE\FORMOTEROL FUMARATE DIHYDRATE
     Dosage: 3 INHALES BID (2/XDAY)
     Route: 055
  8. SYMBICORT [Concomitant]
     Active Substance: BUDESONIDE\FORMOTEROL FUMARATE DIHYDRATE
     Dosage: 6/200 MCG ? 3 INH BID AND 1 ADDIOTIONAL INH AS NEEDED
     Route: 055
  9. INFLECTRA [Suspect]
     Active Substance: INFLIXIMAB-DYYB
     Dosage: 5 MG/KG, Q 0,2,6 WEEKS, THEN EVERY 8 WEEKS
     Route: 042
     Dates: start: 20181005, end: 2018
  10. INFLECTRA [Suspect]
     Active Substance: INFLIXIMAB-DYYB
     Dosage: 5 MG/KG, Q 0, 2, 6 WEEKS, THEN EVERY 8 WEEKS
     Route: 042
     Dates: start: 20190327, end: 20191101
  11. INFLECTRA [Suspect]
     Active Substance: INFLIXIMAB-DYYB
     Dosage: 5 MG/KG, Q 0, 2, 6 WEEKS, THEN EVERY 8 WEEKS
     Route: 042
     Dates: start: 20190410
  12. ACETAMINOPHEN. [Concomitant]
     Active Substance: ACETAMINOPHEN
     Indication: PREMEDICATION
     Dosage: 650 MG, UNK
     Route: 048
     Dates: start: 20190710
  13. ACETAMINOPHEN. [Concomitant]
     Active Substance: ACETAMINOPHEN
     Dosage: 1000 MG
     Dates: start: 20200819, end: 20200819
  14. APO METHOTREXATE [Concomitant]
     Active Substance: METHOTREXATE
     Dosage: 17.5 MG, WEEKLY (DIN 02182963 ? PFIZER ? FILLED ON 13AUG2015)
     Route: 048
  15. APO METHOTREXATE [Concomitant]
     Active Substance: METHOTREXATE
     Dosage: 20 MG TABLET ONCE WEEKLY ON FRIDAY (DIN 02182750) ? (FILLED ON 16NOV2015)
     Route: 048
  16. INFLECTRA [Suspect]
     Active Substance: INFLIXIMAB-DYYB
     Dosage: 5 MG/KG, Q 0, 2, 6 WEEKS, THEN EVERY 8 WEEKS
     Route: 042
     Dates: start: 20190906, end: 20190906
  17. INFLECTRA [Suspect]
     Active Substance: INFLIXIMAB-DYYB
     Dosage: 5 MG/KG EVERY 6 WEEKS
     Route: 042
     Dates: start: 20210219
  18. APO METHOTREXATE [Concomitant]
     Active Substance: METHOTREXATE
     Dosage: UNK, 10 MG TABLET ONCE WEEKLY FOR 2 WEEKS THEN 12.5MG ONCE WEEKLY FOR 2 WEEKS (FILLED ON 12SEP2015)
     Route: 048
  19. APO METHOTREXATE [Concomitant]
     Active Substance: METHOTREXATE
     Dosage: 5MG ONCE A WEEK FOR 2 WEEKS THEN 7.5MG ONCE A WEEK FOR 2 WEEKS ON FRIDAY (FILLED ON 13AUG2015)
     Route: 048
  20. ATASOL [Concomitant]
     Dosage: UNK
     Route: 065
  21. INFLECTRA [Suspect]
     Active Substance: INFLIXIMAB-DYYB
     Dosage: 5 MG/KG, Q 0, 2, 6 WEEKS, THEN EVERY 8 WEEKS
     Route: 042
     Dates: start: 20191101, end: 20191101
  22. APO METHOTREXATE [Concomitant]
     Active Substance: METHOTREXATE
     Dosage: 20 MG, WEEKLY, ON FRIDAY (FILLED ON 13AUG2015)
     Route: 048
  23. METHOTREXATE SODIUM. [Concomitant]
     Active Substance: METHOTREXATE SODIUM
     Dosage: 15 MG, WEEKLY (HOLD)
     Route: 058
  24. PMS?SULFASALAZINE [Concomitant]
     Active Substance: SULFASALAZINE
     Dosage: 500 MG, 2X/DAY
     Route: 065
  25. INFLECTRA [Suspect]
     Active Substance: INFLIXIMAB-DYYB
     Dosage: 5 MG/KG EVERY 6 WEEKS
     Route: 042
     Dates: start: 20200123
  26. INFLECTRA [Suspect]
     Active Substance: INFLIXIMAB-DYYB
     Dosage: 5 MG/KG, EVERY 6 WEEKS
     Route: 042
     Dates: start: 20200504, end: 20200504
  27. INFLECTRA [Suspect]
     Active Substance: INFLIXIMAB-DYYB
     Dosage: 5 MG/KG (380 MG), EVERY 6 WEEKS
     Route: 042
     Dates: start: 20200819, end: 20200819
  28. ACETAMINOPHEN. [Concomitant]
     Active Substance: ACETAMINOPHEN
     Dosage: 500 MG
     Route: 048
     Dates: start: 20191101
  29. APO AMITRIPTYLINE [Concomitant]
     Active Substance: AMITRIPTYLINE
     Dosage: 25 MG, 1X/DAY HS (AT BEDTIME)
     Route: 065
  30. APO METHOTREXATE [Concomitant]
     Active Substance: METHOTREXATE
     Dosage: 10 MG, WEEKLY (FIILED ON 12SEP2015)
     Route: 048
  31. APO METHOTREXATE [Concomitant]
     Active Substance: METHOTREXATE
     Dosage: 5 MG, WEEKLY (ON FRIDAYS [FILLED ON 13AUG2015])
     Route: 048
  32. APO METHOTREXATE [Concomitant]
     Active Substance: METHOTREXATE
     Dosage: 5MG TABLET ONCE WEEKLY (FILLED ON 16NOV2015)
     Route: 048
  33. EURO FOLIC [Concomitant]
     Active Substance: FOLIC ACID
     Dosage: 5 MG, 1X/DAY
     Route: 065
  34. METHOTREXATE. [Concomitant]
     Active Substance: METHOTREXATE
     Dosage: 10 MG, WEEKLY FOR 2 WEEKS THEN 25 MG ON FRIDAY (FILLED ON 29SEP2015)
     Route: 048
  35. VENLAFAXINE [Concomitant]
     Active Substance: VENLAFAXINE HYDROCHLORIDE
     Dosage: 150 MG, 1X/DAY
     Route: 065
  36. INFLECTRA [Suspect]
     Active Substance: INFLIXIMAB-DYYB
     Dosage: 5 MG/KG EVERY 6 WEEKS
     Route: 042
     Dates: start: 20191213, end: 20191213
  37. ACETAMINOPHEN. [Concomitant]
     Active Substance: ACETAMINOPHEN
     Dosage: 650 MG
     Dates: start: 20201127
  38. ADVIL [Concomitant]
     Active Substance: IBUPROFEN
     Dosage: 400 MG, UNK
     Route: 048
  39. APO PANTOPRAZOLE [Concomitant]
     Active Substance: PANTOPRAZOLE SODIUM
     Dosage: 40 MG, 1X/DAY
     Route: 065
  40. METHOTREXATE. [Concomitant]
     Active Substance: METHOTREXATE
     Dosage: 20 MG TABLET, WEEKLY ON FRIDAY (FILLED ON 13AUG2015)
     Route: 048
  41. INFLECTRA [Suspect]
     Active Substance: INFLIXIMAB-DYYB
     Dosage: 5 MG/KG, Q 0, 2, 6 WEEKS, THEN EVERY 8 WEEKS
     Route: 042
     Dates: start: 20190508
  42. INFLECTRA [Suspect]
     Active Substance: INFLIXIMAB-DYYB
     Dosage: 5 MG/KG, Q 0, 2, 6 WEEKS, THEN EVERY 8 WEEKS
     Route: 042
     Dates: start: 20190710, end: 20190710
  43. INFLECTRA [Suspect]
     Active Substance: INFLIXIMAB-DYYB
     Dosage: 5 MG/KG, EVERY 6 WEEKS
     Route: 042
     Dates: start: 20200319, end: 20200319
  44. INFLECTRA [Suspect]
     Active Substance: INFLIXIMAB-DYYB
     Dosage: 5 MG/KG, EVERY 6 WEEKS
     Route: 042
     Dates: start: 20200626, end: 20200626
  45. APO METHOTREXATE [Concomitant]
     Active Substance: METHOTREXATE
     Dosage: 7.5 MG, WEEKLY (ON FRIDAYS [FILLED ON 13AUG2015])
     Route: 048
  46. METHOTREXATE. [Concomitant]
     Active Substance: METHOTREXATE
     Dosage: 20 MG TABLET WEEKLY ON FRIDAY (DIN 02182750)?(FILLED ON 16NOV2015)
     Route: 048
  47. PANTROLOC [Concomitant]
     Dosage: 40 MG, 1X/DAY
     Route: 065
  48. SPIRIVA [Concomitant]
     Active Substance: TIOTROPIUM BROMIDE MONOHYDRATE
     Dosage: 18 UG, 1X/DAY
     Route: 055
  49. INFLECTRA [Suspect]
     Active Substance: INFLIXIMAB-DYYB
     Dosage: 5 MG/KG, Q 0,2,6 WEEKS, THEN EVERY 8 WEEKS
     Route: 042
     Dates: start: 20180810
  50. INFLECTRA [Suspect]
     Active Substance: INFLIXIMAB-DYYB
     Dosage: 5 MG/KG, Q 0, 2, 6 WEEKS, THEN EVERY 8 WEEKS
     Route: 042
     Dates: start: 20181005, end: 2018
  51. INFLECTRA [Suspect]
     Active Substance: INFLIXIMAB-DYYB
     Dosage: UNK, EVERY 6 WEEKS
  52. INFLECTRA [Suspect]
     Active Substance: INFLIXIMAB-DYYB
     Dosage: 5 MG/KG EVERY 6 WEEKS
     Route: 042
     Dates: start: 20200928
  53. INFLECTRA [Suspect]
     Active Substance: INFLIXIMAB-DYYB
     Dosage: 5 MG/KG EVERY 6 WEEKS
     Route: 042
     Dates: start: 20201127
  54. INFLECTRA [Suspect]
     Active Substance: INFLIXIMAB-DYYB
     Dosage: (480 MG) 5 MG/KG EVERY 6 WEEKS
     Route: 042
     Dates: start: 20210108
  55. APO METHOTREXATE [Concomitant]
     Active Substance: METHOTREXATE
     Dosage: 15 MG, WEEKLY (FILLED ON 13AUG2015)
     Route: 048
  56. APO METHOTREXATE [Concomitant]
     Active Substance: METHOTREXATE
     Dosage: 12.5 MG, WEEKLY (FIILED ON 12SEP2015)
     Route: 048
  57. APO METHOTREXATE [Concomitant]
     Active Substance: METHOTREXATE
     Dosage: 10 MG TABLET ONCE A WEEK FOR 2 WEEKS THEN 25 MG ON FRIDAY (FILLED ON 29SEP2015)
     Route: 048

REACTIONS (15)
  - Inappropriate schedule of product administration [Unknown]
  - Nasopharyngitis [Unknown]
  - Off label use [Unknown]
  - Intentional product use issue [Unknown]
  - Arthralgia [Unknown]
  - Blood pressure increased [Not Recovered/Not Resolved]
  - Tooth abscess [Recovering/Resolving]
  - Off label use [Unknown]
  - Renal pain [Unknown]
  - Tooth infection [Unknown]
  - Asthenia [Not Recovered/Not Resolved]
  - Headache [Unknown]
  - Drug ineffective [Not Recovered/Not Resolved]
  - Incorrect dose administered [Unknown]
  - Heart rate increased [Unknown]

NARRATIVE: CASE EVENT DATE: 20180518
